FAERS Safety Report 4816437-2 (Version None)
Quarter: 2005Q4

REPORT INFORMATION
  Report Type: 
  Country: None (occurrence: None)
  Receive Date: 20051028
  Receipt Date: 20051024
  Transmission Date: 20060501
  Serious: Yes (Other)
  Sender: FDA-Public Use
  Company Number: 2005-133962-NL

PATIENT
  Age: 77 Year
  Sex: Male

DRUGS (14)
  1. MIRTAZAPINE [Suspect]
     Indication: DEPRESSION
     Dosage: DF, ORAL
     Route: 048
  2. VENLAFAXINE HCL [Suspect]
     Indication: DEPRESSION
     Dosage: DF, ORAL
     Route: 048
  3. FLUOXETINE [Concomitant]
  4. CITALOPRAM [Concomitant]
  5. ZOPLICONE [Concomitant]
  6. TAMSULOSIN [Concomitant]
  7. IPRATROPIUM BROMIDE [Concomitant]
  8. SALMETEROL [Concomitant]
  9. CEPHALEXIN [Concomitant]
  10. ASPIRIN [Concomitant]
  11. SIMVASTATIN [Concomitant]
  12. LORAZEPAM [Concomitant]
  13. HALOPERIDOL [Concomitant]
  14. SENNA [Concomitant]

REACTIONS (1)
  - VENTRICULAR EXTRASYSTOLES [None]
